FAERS Safety Report 17435260 (Version 1)
Quarter: 2020Q1

REPORT INFORMATION
  Report Type: Spontaneous
  Country: GB (occurrence: GB)
  Receive Date: 20200218
  Receipt Date: 20200218
  Transmission Date: 20200409
  Serious: Yes (Life-Threatening, Hospitalization, Disabling, Other)
  Sender: FDA-Public Use
  Company Number: None

PATIENT
  Age: 31 Year
  Sex: Female
  Weight: 59 kg

DRUGS (3)
  1. COCODAMOL [Suspect]
     Active Substance: ACETAMINOPHEN\CODEINE PHOSPHATE
  2. GABAPENTIN. [Suspect]
     Active Substance: GABAPENTIN
     Indication: NERVE INJURY
  3. PARACETAMOL [Concomitant]
     Active Substance: ACETAMINOPHEN

REACTIONS (12)
  - Musculoskeletal pain [None]
  - Paraesthesia [None]
  - Diarrhoea [None]
  - Palpitations [None]
  - Influenza like illness [None]
  - Pain [None]
  - Asthenia [None]
  - Chest pain [None]
  - Arthralgia [None]
  - Tremor [None]
  - Groin pain [None]
  - Constipation [None]

NARRATIVE: CASE EVENT DATE: 20191206
